FAERS Safety Report 7622368-5 (Version None)
Quarter: 2011Q3

REPORT INFORMATION
  Report Type: 
  Country: None (occurrence: None)
  Receive Date: 20110711
  Receipt Date: 20110704
  Transmission Date: 20111222
  Serious: Yes (Other)
  Sender: FDA-Public Use
  Company Number: GB-ACCORD-009795

PATIENT
  Sex: Male

DRUGS (3)
  1. ASPIRIN [Concomitant]
  2. SIMVASTATIN [Suspect]
     Indication: ACUTE MYOCARDIAL INFARCTION
     Dosage: ORAL
     Route: 048
     Dates: start: 19880101
  3. WARFARIN SODIUM [Concomitant]

REACTIONS (5)
  - SEXUAL DYSFUNCTION [None]
  - MUSCLE SPASMS [None]
  - ABNORMAL BEHAVIOUR [None]
  - INSOMNIA [None]
  - SUICIDAL IDEATION [None]
